FAERS Safety Report 9602858 (Version 2)
Quarter: 2013Q4

REPORT INFORMATION
  Report Type: Spontaneous
  Country: FR (occurrence: FR)
  Receive Date: 20131007
  Receipt Date: 20131007
  Transmission Date: 20140711
  Serious: Yes (Death, Other)
  Sender: FDA-Public Use
  Company Number: FR-SA-RENA-1001842

PATIENT
  Age: 77 Year
  Sex: Male

DRUGS (9)
  1. RENAGEL [Suspect]
     Indication: PRODUCT USED FOR UNKNOWN INDICATION
     Dosage: 0.8 G, QD
     Route: 065
     Dates: start: 20130613, end: 20130624
  2. HYDROCORTISONE [Suspect]
     Indication: PRODUCT USED FOR UNKNOWN INDICATION
     Dosage: 10 MG, QD
     Route: 048
     Dates: start: 20130612, end: 20130624
  3. INEXIUM [Suspect]
     Indication: PRODUCT USED FOR UNKNOWN INDICATION
     Dosage: 20 MG, QD
     Route: 065
     Dates: start: 20130612, end: 20130624
  4. HEPARIN CHOAY [Suspect]
     Indication: PRODUCT USED FOR UNKNOWN INDICATION
     Dosage: 25000 IU, QD
     Route: 065
     Dates: start: 20130614, end: 20130624
  5. BUDESONIDE [Suspect]
     Indication: PRODUCT USED FOR UNKNOWN INDICATION
     Dosage: 2 MG, QD
     Route: 065
     Dates: start: 20130609, end: 20130624
  6. CONTRAMAL [Suspect]
     Indication: PRODUCT USED FOR UNKNOWN INDICATION
     Dosage: 50 MG, TID
     Route: 065
     Dates: start: 20130619, end: 20130624
  7. COUMADINE [Suspect]
     Indication: PRODUCT USED FOR UNKNOWN INDICATION
     Dosage: 7 MG, QD
     Route: 065
     Dates: start: 20130615, end: 20130624
  8. MIMPARA [Suspect]
     Indication: PRODUCT USED FOR UNKNOWN INDICATION
     Dosage: 30 MG, QD
     Route: 065
     Dates: start: 20130615, end: 20130624
  9. MONO-TILDIEM [Suspect]
     Indication: ATRIAL TACHYCARDIA
     Dosage: 200 MG, QD
     Route: 065
     Dates: start: 20130611, end: 20130624

REACTIONS (3)
  - Hepatitis fulminant [Fatal]
  - Multi-organ failure [Fatal]
  - Haemophilus infection [Unknown]
